FAERS Safety Report 8342866-9 (Version None)
Quarter: 2012Q2

REPORT INFORMATION
  Report Type: 
  Country: None (occurrence: None)
  Receive Date: 20120504
  Receipt Date: 20120504
  Transmission Date: 20120825
  Serious: Yes (Hospitalization)
  Sender: FDA-Public Use
  Company Number: None

PATIENT
  Age: 74 Year
  Sex: Male
  Weight: 92.3 kg

DRUGS (12)
  1. LOSARTAN POTASSIUM [Concomitant]
  2. ASPIRIN [Concomitant]
  3. TRAZODONE HCL [Concomitant]
  4. LIPITOR [Concomitant]
  5. XARELTO [Suspect]
     Indication: ATRIAL FIBRILLATION
     Dosage: 20MG ONCE DAILY ORAL
     Route: 048
     Dates: start: 20120326, end: 20120418
  6. AMIODARONE HCL [Concomitant]
  7. HYDROCHLOROTHIAZIDE [Concomitant]
  8. ADVAIR DISKUS 100/50 [Concomitant]
  9. LAMICTAL [Concomitant]
  10. METOPROLOL TARTRATE [Concomitant]
  11. ABILIFY [Concomitant]
  12. IMDUR [Concomitant]

REACTIONS (4)
  - TORSADE DE POINTES [None]
  - EPISTAXIS [None]
  - HAEMATURIA [None]
  - INTERNATIONAL NORMALISED RATIO ABNORMAL [None]
